FAERS Safety Report 9684573 (Version 4)
Quarter: 2013Q4

REPORT INFORMATION
  Report Type: Report from Study
  Country: US (occurrence: US)
  Receive Date: 20131112
  Receipt Date: 20131230
  Transmission Date: 20140711
  Serious: Yes (Death, Life-Threatening, Hospitalization, Other)
  Sender: FDA-Public Use
  Company Number: US-ACTELION-A-NJ2013-90442

PATIENT
  Age: 11 Month
  Sex: Female

DRUGS (3)
  1. TRACLEER [Suspect]
     Indication: PULMONARY ARTERIAL HYPERTENSION
     Dosage: 1 MG/KG, UNK
     Route: 048
     Dates: end: 20131016
  2. TRACLEER [Suspect]
     Dosage: 0.5 UNK, UNK
     Route: 048
     Dates: start: 201308, end: 20131016
  3. SILDENAFIL [Concomitant]
     Indication: PULMONARY ARTERIAL HYPERTENSION

REACTIONS (9)
  - Liver function test abnormal [Fatal]
  - Multi-organ failure [Fatal]
  - Sepsis [Fatal]
  - Complication of device insertion [Not Recovered/Not Resolved]
  - Pulmonary hypertensive crisis [Not Recovered/Not Resolved]
  - Hepatic failure [Unknown]
  - Ocular icterus [Fatal]
  - Alanine aminotransferase increased [Fatal]
  - Blood bilirubin increased [Fatal]
